FAERS Safety Report 13509196 (Version 2)
Quarter: 2017Q2

REPORT INFORMATION
  Report Type: Spontaneous
  Country: DE (occurrence: DE)
  Receive Date: 20170503
  Receipt Date: 20170504
  Transmission Date: 20170830
  Serious: Yes (Hospitalization)
  Sender: FDA-Public Use
  Company Number: DE-UNITED THERAPEUTICS-UNT-2017-006152

PATIENT

DRUGS (1)
  1. REMODULIN [Suspect]
     Active Substance: TREPROSTINIL
     Indication: PULMONARY ARTERIAL HYPERTENSION
     Route: 041

REACTIONS (6)
  - Device use error [Unknown]
  - Injection site extravasation [Unknown]
  - Overdose [Unknown]
  - Hypotension [Unknown]
  - Central venous catheterisation [Unknown]
  - Product use issue [Unknown]
